FAERS Safety Report 15393540 (Version 1)
Quarter: 2018Q3

REPORT INFORMATION
  Report Type: Report from Study
  Country: IT (occurrence: IT)
  Receive Date: 20180917
  Receipt Date: 20180917
  Transmission Date: 20181010
  Serious: Yes (Other)
  Sender: FDA-Public Use
  Company Number: IT-MYLANLABS-2018M1067487

PATIENT
  Age: 62 Year
  Sex: Male

DRUGS (3)
  1. RAMIPRIL. [Concomitant]
     Active Substance: RAMIPRIL
     Indication: PRODUCT USED FOR UNKNOWN INDICATION
     Dosage: UNK
  2. SERTRALINE [Concomitant]
     Active Substance: SERTRALINE HYDROCHLORIDE
     Indication: PRODUCT USED FOR UNKNOWN INDICATION
     Dosage: UNK
  3. DALMADORM [Suspect]
     Active Substance: FLURAZEPAM HYDROCHLORIDE
     Indication: PRODUCT USED FOR UNKNOWN INDICATION
     Dosage: 12 DF, TOTAL
     Route: 048
     Dates: start: 20180422, end: 20180422

REACTIONS (4)
  - Hypokinesia [Recovered/Resolved]
  - Depressed level of consciousness [Recovered/Resolved]
  - Drug abuse [Recovered/Resolved]
  - Intentional self-injury [Unknown]

NARRATIVE: CASE EVENT DATE: 20180422
